FAERS Safety Report 7545445-6 (Version None)
Quarter: 2011Q2

REPORT INFORMATION
  Report Type: 
  Country: None (occurrence: None)
  Receive Date: 20110613
  Receipt Date: 20110613
  Transmission Date: 20111010
  Serious: Yes (Hospitalization)
  Sender: FDA-Public Use
  Company Number: None

PATIENT
  Sex: Female
  Weight: 80 kg

DRUGS (4)
  1. DOXORUBICIN HYDROCHLORIDE [Suspect]
     Dosage: 114 MG
     Dates: end: 20110407
  2. BEVACIZUMAB (RHUMAB VEGF) [Suspect]
     Dosage: 818 MG
     Dates: end: 20110407
  3. NEULASTA [Suspect]
     Dosage: 6 MG
     Dates: end: 20110407
  4. CYCLOPHOSPHAMIDE [Suspect]
     Dosage: 1146 MG
     Dates: end: 20110407

REACTIONS (4)
  - NECK PAIN [None]
  - JUGULAR VEIN THROMBOSIS [None]
  - SUBCLAVIAN VEIN THROMBOSIS [None]
  - LOCAL SWELLING [None]
